FAERS Safety Report 8127244-X (Version None)
Quarter: 2012Q1

REPORT INFORMATION
  Report Type: 
  Country: None (occurrence: None)
  Receive Date: 20120210
  Receipt Date: 20120201
  Transmission Date: 20120608
  Serious: Yes (Other)
  Sender: FDA-Public Use
  Company Number: US-BAYER-2011-047519

PATIENT
  Age: 27 Year
  Sex: Female
  Weight: 58.957 kg

DRUGS (3)
  1. YAZ [Suspect]
     Indication: CONTRACEPTION
     Dosage: UNK
     Dates: start: 20080701, end: 20090301
  2. YAZ [Suspect]
     Indication: PREMENSTRUAL SYNDROME
  3. ASTHMA/BREATHING MEDICATIONS [Concomitant]
     Dosage: UNK
     Dates: start: 20060101

REACTIONS (9)
  - CEREBRAL INFARCTION [None]
  - EMOTIONAL DISTRESS [None]
  - TRANSIENT ISCHAEMIC ATTACK [None]
  - INJURY [None]
  - PAIN [None]
  - CEREBRAL ARTERY OCCLUSION [None]
  - FEAR [None]
  - ANXIETY [None]
  - MENTAL DISORDER [None]
